FAERS Safety Report 4749699-0 (Version None)
Quarter: 2005Q3

REPORT INFORMATION
  Report Type: 
  Country: None (occurrence: None)
  Receive Date: 20050822
  Receipt Date: 20050331
  Transmission Date: 20060218
  Serious: Yes (Hospitalization, Disabling)
  Sender: FDA-Public Use
  Company Number: US-ROCHE-400579

PATIENT
  Age: 24 Year
  Sex: Male
  Weight: 93.9 kg

DRUGS (39)
  1. ACCUTANE [Suspect]
     Indication: ACNE
     Route: 048
     Dates: start: 19890615, end: 19890615
  2. ACCUTANE [Suspect]
     Route: 048
     Dates: start: 19930315, end: 19930816
  3. ACCUTANE [Suspect]
     Route: 048
     Dates: start: 19931103, end: 19940415
  4. ACCUTANE [Suspect]
     Route: 048
     Dates: start: 19960109
  5. ACCUTANE [Suspect]
     Route: 048
     Dates: start: 19961015
  6. ACCUTANE [Suspect]
     Dosage: TAKEN ONCE EVERY THREE TO FIVE DAYS AS NECESSARY.
     Route: 048
     Dates: start: 20010423
  7. ACCUTANE [Suspect]
     Route: 048
     Dates: start: 20040419
  8. BACTRIM DS [Concomitant]
     Route: 048
     Dates: start: 19930119
  9. RETIN-A [Concomitant]
     Route: 061
     Dates: start: 19930119
  10. PANOXYL [Concomitant]
     Route: 061
     Dates: start: 19930119
  11. BACTROBAN [Concomitant]
     Route: 061
     Dates: start: 19940520
  12. BENZAC 5 [Concomitant]
     Route: 061
     Dates: start: 19940520
  13. KENALOG-10 [Concomitant]
     Dosage: IN JUL-92: PATIENT RECEIVED KENALOG IN ORABASE FOR APHTHOUS ULCERS.
     Dates: start: 19940526, end: 19940526
  14. METROGEL [Concomitant]
     Route: 061
     Dates: start: 19941123
  15. SPECTAZOLE [Concomitant]
     Route: 061
     Dates: start: 19941123
  16. DIFLUCAN [Concomitant]
     Dosage: DOSAGE REGIMEN REPORTED AS: 200MG.
     Route: 048
     Dates: start: 19950814
  17. ERYTHROMYCIN [Concomitant]
     Indication: ACNE
     Dates: start: 19920728
  18. CLEOCIN T [Concomitant]
     Indication: ACNE
     Dates: start: 19920728
  19. NIZORAL CREAM [Concomitant]
     Indication: ACNE
     Route: 061
     Dates: start: 19920728
  20. LIDEX [Concomitant]
     Indication: ULCER
     Dates: start: 19920728
  21. CIPROFLOXACIN HCL [Concomitant]
     Dosage: RESTARTED ON 28 JUL 2004 FOR OTITIS EXTERNA.
     Dates: start: 19960109
  22. BROMFED [Concomitant]
     Indication: EUSTACHIAN TUBE DYSFUNCTION
     Dates: start: 19990218
  23. METAMUCIL [Concomitant]
     Dates: start: 19991008
  24. GAS-X [Concomitant]
     Dates: start: 19991008
  25. MYLANTA PLUS [Concomitant]
     Dates: start: 19991008
  26. GENERIC UNKNOWN [Concomitant]
     Dosage: TRADE NAME GIVEN AS: SITZ BATHS.
     Dates: start: 20010531
  27. KEFLEX [Concomitant]
     Dates: start: 20010531
  28. ANTIBIOTICS NOS [Concomitant]
     Dates: start: 20010621
  29. LEVAQUIN [Concomitant]
     Dosage: TAKEN PRIOR TO SURGERY ON 22 AUG-01.
     Dates: start: 20010817
  30. DURATUSS [Concomitant]
     Dosage: STOPPED AND RESTARTED IN 04 APR 2002.
     Dates: start: 20011004
  31. ZITHROMAX [Concomitant]
     Dosage: STOPPED AND RESTARTED IN 04 APR 2002 AND 18 AUG 2003.
     Dates: start: 20011004
  32. BENADRYL [Concomitant]
     Dates: start: 20011004
  33. TUSSIONEX [Concomitant]
     Dates: start: 20020404
  34. DOXYCYCLINE [Concomitant]
     Indication: SINUSITIS
     Dates: start: 20020605
  35. LORTAB [Concomitant]
     Indication: SINUSITIS
     Dates: start: 20020605
  36. ALLEGRA [Concomitant]
     Indication: ALLERGIC SINUSITIS
     Dates: start: 20030818
  37. IBUPROFEN [Concomitant]
     Dosage: STOPPED AND RETAKEN ON 3 MAR 2005.
     Dates: start: 20041005
  38. SUDAFED 12 HOUR [Concomitant]
     Dates: start: 20050504
  39. NIACIN [Concomitant]
     Dates: start: 20050105

REACTIONS (48)
  - ABDOMINAL PAIN UPPER [None]
  - ACNE [None]
  - ANAEMIA [None]
  - ANAL FISTULA [None]
  - ANAL HAEMORRHAGE [None]
  - APHTHOUS STOMATITIS [None]
  - ARTHRALGIA [None]
  - ASPARTATE AMINOTRANSFERASE INCREASED [None]
  - ATHEROSCLEROSIS [None]
  - BACK PAIN [None]
  - BLOOD TRIGLYCERIDES INCREASED [None]
  - BODY TINEA [None]
  - CALCINOSIS [None]
  - CARDIAC DISORDER [None]
  - CHEST PAIN [None]
  - COLON ADENOMA [None]
  - CONDITION AGGRAVATED [None]
  - CORONARY ARTERY DISEASE [None]
  - CROHN'S DISEASE [None]
  - DECREASED APPETITE [None]
  - DIZZINESS [None]
  - FATIGUE [None]
  - FLANK PAIN [None]
  - FURUNCLE [None]
  - GASTROINTESTINAL DISORDER [None]
  - GROIN PAIN [None]
  - HYPERAEMIA [None]
  - ILEITIS [None]
  - INFLAMMATORY BOWEL DISEASE [None]
  - INSOMNIA [None]
  - INTESTINAL HAEMORRHAGE [None]
  - IRRITABLE BOWEL SYNDROME [None]
  - LIVER FUNCTION TEST ABNORMAL [None]
  - MEAN CELL VOLUME DECREASED [None]
  - MOUTH ULCERATION [None]
  - MULTI-ORGAN DISORDER [None]
  - NODULE [None]
  - PAIN IN EXTREMITY [None]
  - PILONIDAL CYST [None]
  - RECTAL HAEMORRHAGE [None]
  - ROSACEA [None]
  - STAPHYLOCOCCAL INFECTION [None]
  - STRESS [None]
  - SUBCUTANEOUS ABSCESS [None]
  - SWEAT GLAND INFECTION [None]
  - TINEA INFECTION [None]
  - VIRAL UPPER RESPIRATORY TRACT INFECTION [None]
  - WEIGHT DECREASED [None]
